FAERS Safety Report 25280785 (Version 1)
Quarter: 2025Q2

REPORT INFORMATION
  Report Type: Spontaneous
  Country: FR (occurrence: FR)
  Receive Date: 20250508
  Receipt Date: 20250508
  Transmission Date: 20250716
  Serious: Yes (Hospitalization, Other)
  Sender: CHEPLAPHARM
  Company Number: None

PATIENT
  Age: 88 Year
  Sex: Male

DRUGS (14)
  1. OLANZAPINE [Suspect]
     Active Substance: OLANZAPINE
     Indication: Agitation
     Dosage: 1 TABLET IN THE EVENING?DAILY DOSE: 5 MILLIGRAM
     Route: 048
     Dates: start: 20250401, end: 20250415
  2. RISPERDAL [Suspect]
     Active Substance: RISPERIDONE
     Indication: Agitation
     Route: 048
     Dates: start: 20250326, end: 20250331
  3. ACETAMINOPHEN [Suspect]
     Active Substance: ACETAMINOPHEN
     Indication: Pain
     Route: 048
     Dates: start: 20250310, end: 20250415
  4. PANTOPRAZOLE [Concomitant]
     Active Substance: PANTOPRAZOLE
     Dosage: EVENING?DAILY DOSE: 1 DOSAGE FORM
  5. POLYETHYLENE GLYCOLS [Concomitant]
     Active Substance: POLYETHYLENE GLYCOLS
  6. LOVENOX [Concomitant]
     Active Substance: ENOXAPARIN SODIUM
     Indication: Prophylaxis
  7. KARDEGIC [Concomitant]
     Active Substance: ASPIRIN DL-LYSINE
  8. FUROSEMIDE [Concomitant]
     Active Substance: FUROSEMIDE
     Dosage: MORNING?DAILY DOSE: 1 DOSAGE FORM
  9. BISOPROLOL [Concomitant]
     Active Substance: BISOPROLOL
     Dosage: MORNING ?DAILY DOSE: 1 DOSAGE FORM
  10. PERINDOPRIL [Concomitant]
     Active Substance: PERINDOPRIL
     Dosage: MORNING ?DAILY DOSE: 2 MILLIGRAM
  11. ALFUZOSIN [Concomitant]
     Active Substance: ALFUZOSIN
     Dosage: EVENING ?DAILY DOSE: 1 DOSAGE FORM
  12. MORPHINE SULFATE [Concomitant]
     Active Substance: MORPHINE SULFATE
  13. OXAZEPAM [Concomitant]
     Active Substance: OXAZEPAM
  14. MIANSERIN HYDROCHLORIDE [Concomitant]
     Active Substance: MIANSERIN HYDROCHLORIDE
     Dosage: EVENING?DAILY DOSE: 1 DOSAGE FORM

REACTIONS (8)
  - Hepatic cytolysis [Not Recovered/Not Resolved]
  - Bacterial pyelonephritis [Unknown]
  - Enterococcal infection [Unknown]
  - Pyrexia [Unknown]
  - Infrequent bowel movements [Unknown]
  - Klebsiella infection [Unknown]
  - Normocytic anaemia [Unknown]
  - Off label use [Recovered/Resolved]

NARRATIVE: CASE EVENT DATE: 20250401
